FAERS Safety Report 17977107 (Version 4)
Quarter: 2021Q4

REPORT INFORMATION
  Report Type: Spontaneous
  Country: JP (occurrence: JP)
  Receive Date: 20200703
  Receipt Date: 20211217
  Transmission Date: 20220303
  Serious: Yes (Other)
  Sender: FDA-Public Use
  Company Number: JP-AUROBINDO-AUR-APL-2020-032127

PATIENT
  Age: 76 Year
  Sex: Male

DRUGS (6)
  1. FOLOTYN [Suspect]
     Active Substance: PRALATREXATE
     Indication: Cutaneous T-cell lymphoma stage IV
     Dosage: UNK
     Route: 042
  2. FOLOTYN [Suspect]
     Active Substance: PRALATREXATE
     Dosage: UNK
     Route: 048
  3. FORODESINE HYDROCHLORIDE [Suspect]
     Active Substance: FORODESINE HYDROCHLORIDE
     Indication: Cutaneous T-cell lymphoma stage IV
     Dosage: UNK
     Route: 048
  4. FOLIC ACID [Concomitant]
     Active Substance: FOLIC ACID
     Indication: Prophylaxis
     Dosage: UNK
     Route: 065
  5. VITAMIN B12 [Concomitant]
     Active Substance: CYANOCOBALAMIN
     Indication: Prophylaxis
     Dosage: UNK
     Route: 065
  6. MOGAMULIZUMAB [Concomitant]
     Active Substance: MOGAMULIZUMAB
     Indication: Cutaneous T-cell lymphoma stage IV
     Dosage: UNK
     Route: 065

REACTIONS (6)
  - Blood lactate dehydrogenase increased [Recovered/Resolved]
  - Malignant neoplasm progression [Recovered/Resolved]
  - Malaise [Recovered/Resolved]
  - Therapeutic response decreased [Unknown]
  - Erythema [Unknown]
  - Nodule [Unknown]
